APPROVED DRUG PRODUCT: IBUPROFEN
Active Ingredient: IBUPROFEN
Strength: 400MG
Dosage Form/Route: TABLET;ORAL
Application: A073343 | Product #001
Applicant: TEVA PHARMACEUTICALS USA INC
Approved: Jun 30, 1992 | RLD: No | RS: No | Type: DISCN